FAERS Safety Report 10430431 (Version 2)
Quarter: 2014Q3

REPORT INFORMATION
  Report Type: Spontaneous
  Country: BE (occurrence: BE)
  Receive Date: 20140904
  Receipt Date: 20140904
  Transmission Date: 20150326
  Serious: Yes (Death, Hospitalization, Other)
  Sender: FDA-Public Use
  Company Number: BE-MYLANLABS-2014M1001797

PATIENT

DRUGS (1)
  1. VALPROATE MYLAN OPLOSSING VOOR INJECTIE [Suspect]
     Active Substance: VALPROATE SODIUM
     Indication: EPILEPSY
     Dosage: 1.6 G/ML
     Route: 042
     Dates: start: 20140707, end: 20140717

REACTIONS (2)
  - Lung infection [Fatal]
  - Hyperammonaemia [Recovering/Resolving]

NARRATIVE: CASE EVENT DATE: 20140717
